FAERS Safety Report 4567279-7 (Version None)
Quarter: 2005Q1

REPORT INFORMATION
  Report Type: 
  Country: None (occurrence: None)
  Receive Date: 20050201
  Receipt Date: 20041209
  Transmission Date: 20050727
  Serious: Yes (Death)
  Sender: FDA-Public Use
  Company Number: US-BRISTOL-MYERS SQUIBB COMPANY-12791463

PATIENT
  Age: 50 Year
  Sex: Female

DRUGS (1)
  1. VP-16 [Suspect]
     Indication: OVARIAN CANCER
     Route: 048
     Dates: start: 20040923, end: 20041006

REACTIONS (2)
  - OVARIAN CANCER [None]
  - VOMITING [None]
